FAERS Safety Report 4847127-8 (Version None)
Quarter: 2005Q4

REPORT INFORMATION
  Report Type: 
  Country: None (occurrence: None)
  Receive Date: 20051206
  Receipt Date: 20051206
  Transmission Date: 20060501
  Serious: Yes (Death, Hospitalization)
  Sender: FDA-Public Use
  Company Number: None

PATIENT
  Age: 56 Year
  Sex: Female
  Weight: 79.5 kg

DRUGS (12)
  1. AVASTIN [Suspect]
     Indication: BREAST CANCER
     Dosage: 10 MG/KG 2 X MONTH IV
     Route: 042
     Dates: start: 20050302, end: 20051102
  2. CYTOXAN [Suspect]
     Indication: BREAST CANCER
     Dosage: 50 MG EVERY DAY ORAL
     Route: 048
     Dates: start: 20050302, end: 20051115
  3. METHOTREXATE [Suspect]
     Indication: BREAST CANCER
     Dosage: 2.5 MG 2 X A DAY ORAL
     Route: 048
     Dates: start: 20050302, end: 20051110
  4. AMBIEN [Concomitant]
  5. CELEXA [Concomitant]
  6. COMPAZINE [Concomitant]
  7. LEVOXYL [Concomitant]
  8. OXYCONTIN [Concomitant]
  9. RITALIN [Concomitant]
  10. TRILISATE [Concomitant]
  11. WELLBUTRIN [Concomitant]
  12. OXYCODONE [Concomitant]

REACTIONS (3)
  - CEREBROVASCULAR ACCIDENT [None]
  - DISEASE PROGRESSION [None]
  - MENINGITIS [None]
